FAERS Safety Report 5451259-3 (Version None)
Quarter: 2007Q3

REPORT INFORMATION
  Report Type: 
  Country: None (occurrence: None)
  Receive Date: 20070911
  Receipt Date: 20070911
  Transmission Date: 20080115
  Serious: No
  Sender: FDA-Public Use
  Company Number: None

PATIENT
  Age: 55 Year
  Sex: Male

DRUGS (1)
  1. SULFAMETHOXAZOLE AND TRIMETHOPRIM [Suspect]
     Indication: ESCHERICHIA INFECTION
     Dosage: DS BID PO
     Route: 048
     Dates: start: 20070904, end: 20070905

REACTIONS (1)
  - RASH [None]
